FAERS Safety Report 4617840-6 (Version None)
Quarter: 2005Q1

REPORT INFORMATION
  Report Type: 
  Country: None (occurrence: None)
  Receive Date: 20050324
  Receipt Date: 20050322
  Transmission Date: 20050727
  Serious: Yes (Other)
  Sender: FDA-Public Use
  Company Number: US-GLAXOSMITHKLINE-A0550865A

PATIENT
  Age: 55 Year
  Sex: Female

DRUGS (2)
  1. NAVELBINE [Suspect]
     Indication: BREAST CANCER
     Dosage: 30MGM2 CYCLIC
     Route: 042
     Dates: start: 20040101
  2. HERCEPTIN [Concomitant]

REACTIONS (2)
  - HEPATIC ENZYME INCREASED [None]
  - INJECTION SITE EXTRAVASATION [None]
